FAERS Safety Report 9887846 (Version 1)
Quarter: 2014Q1

REPORT INFORMATION
  Report Type: Spontaneous
  Country: FR (occurrence: FR)
  Receive Date: 20140211
  Receipt Date: 20140211
  Transmission Date: 20141002
  Serious: Yes (Hospitalization)
  Sender: FDA-Public Use
  Company Number: PHHY2014FR015855

PATIENT
  Age: 73 Year
  Sex: Male

DRUGS (9)
  1. TAREG [Suspect]
     Dosage: 80 MG, QD
     Route: 048
     Dates: end: 20140115
  2. CLOPIXOL [Suspect]
     Dosage: 10 MG, QD
     Route: 048
     Dates: start: 20131231, end: 20140115
  3. INEXIUM//ESOMEPRAZOLE MAGNESIUM [Suspect]
     Dosage: 20 MG, QD
     Route: 048
     Dates: end: 20140115
  4. SILODYX [Suspect]
     Dosage: 8 MG, QD
     Route: 048
     Dates: end: 20140115
  5. XEROQUEL [Concomitant]
     Dosage: UNK UKN, UNK
     Dates: end: 20131231
  6. LERCAN [Concomitant]
     Dosage: UNK UKN, UNK
  7. SERESTA [Concomitant]
     Dosage: UNK UKN, UNK
  8. NOVOMIX [Concomitant]
     Dosage: UNK UKN, UNK
  9. GLUCOR [Concomitant]
     Dosage: UNK UKN, UNK

REACTIONS (1)
  - Agranulocytosis [Recovered/Resolved]
